FAERS Safety Report 6235101-9 (Version None)
Quarter: 2009Q2

REPORT INFORMATION
  Report Type: 
  Country: None (occurrence: None)
  Receive Date: 20090618
  Receipt Date: 20090618
  Transmission Date: 20091009
  Serious: Yes (Death)
  Sender: FDA-Public Use
  Company Number: US-ASTRAZENECA-2009UW15655

PATIENT
  Age: 24 Year
  Sex: Female
  Weight: 162 kg

DRUGS (2)
  1. SEROQUEL [Suspect]
     Route: 048
     Dates: start: 20090505
  2. SEROQUEL [Suspect]
     Route: 048
     Dates: start: 20090505

REACTIONS (3)
  - ABNORMAL BEHAVIOUR [None]
  - DECREASED INTEREST [None]
  - OVERDOSE [None]
